FAERS Safety Report 6879105-1 (Version None)
Quarter: 2010Q3

REPORT INFORMATION
  Report Type: 
  Country: None (occurrence: None)
  Receive Date: 20100728
  Receipt Date: 20100625
  Transmission Date: 20110219
  Serious: No
  Sender: FDA-Public Use
  Company Number: US-BAYER-201026817NA

PATIENT
  Age: 28 Year
  Sex: Female

DRUGS (2)
  1. EOVIST [Suspect]
     Indication: PRODUCT USED FOR UNKNOWN INDICATION
  2. PYLERA [Concomitant]

REACTIONS (3)
  - NAUSEA [None]
  - URTICARIA [None]
  - VOMITING [None]
